FAERS Safety Report 4676586-9 (Version None)
Quarter: 2005Q2

REPORT INFORMATION
  Report Type: 
  Country: None (occurrence: None)
  Receive Date: 20050525
  Receipt Date: 20050516
  Transmission Date: 20051028
  Serious: Yes (Other)
  Sender: FDA-Public Use
  Company Number: 2005068466

PATIENT
  Age: 44 Year
  Sex: Female
  Weight: 101 kg

DRUGS (11)
  1. CARDURA [Suspect]
     Indication: HYPERTENSION
     Dosage: 1 MG (1 MG, 1 IN 1 D), ORAL
     Route: 048
     Dates: start: 20050427
  2. INDAPAMIDE [Concomitant]
  3. ATROVASTATIN (ATORVASTATIN) [Concomitant]
  4. ASPIRIN [Concomitant]
  5. LANTUS [Concomitant]
  6. THYROXINE (LEVOTHYROXINE) [Concomitant]
  7. METFORMIN HCL [Concomitant]
  8. GLIMEPERIDE (GLIMEPIRIDE) [Concomitant]
  9. AMLODIPINE [Concomitant]
  10. ENALAPRIL MALEATE [Concomitant]
  11. OMEPRAZOLE [Concomitant]

REACTIONS (4)
  - HYPERGLYCAEMIA [None]
  - HYPERHIDROSIS [None]
  - HYPOGLYCAEMIA [None]
  - NERVOUSNESS [None]
